FAERS Safety Report 7371912-4 (Version None)
Quarter: 2011Q1

REPORT INFORMATION
  Report Type: 
  Country: None (occurrence: None)
  Receive Date: 20110324
  Receipt Date: 20110317
  Transmission Date: 20110831
  Serious: Yes (Death)
  Sender: FDA-Public Use
  Company Number: US-ROCHE-766652

PATIENT
  Age: 36 Year
  Sex: Female

DRUGS (5)
  1. CLONAZEPAM [Suspect]
     Dosage: ROUTE: INGESTION, ONGOING STATUS UNKNOWN AT THE TIME OF DEATH
     Route: 048
  2. MORPHINE [Suspect]
     Dosage: ROUTE: INGESTION, ONGOING STATUS UNKNOWN AT THE TIME OF DEATH
     Route: 048
  3. PHENOBARBITAL SODIUM 100MG CAP [Suspect]
     Dosage: ROUTE: INGESTION, ONGOING STATUS UNKNOWN AT THE TIME OF DEATH. DRUG: ANTICHOLINERGIC/ PHENOBARBITAL.
     Route: 048
  4. ALPRAZOLAM [Suspect]
     Dosage: ROUTE: INGESTION, ONGOING STATUS UNKNOWN AT THE TIME OF DEATH.
     Route: 048
  5. LEVOTHYROXINE SODIUM [Suspect]
     Dosage: ROUTE: INGESTION, ONGOING STATUS UNKNOWN AT THE TIME OF DEATH.
     Route: 048

REACTIONS (3)
  - TOXICITY TO VARIOUS AGENTS [None]
  - CARDIAC ARREST [None]
  - RESPIRATORY ARREST [None]
